FAERS Safety Report 4296097-2 (Version None)
Quarter: 2004Q1

REPORT INFORMATION
  Report Type: 
  Country: None (occurrence: None)
  Receive Date: 20040213
  Receipt Date: 20040213
  Transmission Date: 20041129
  Serious: No
  Sender: FDA-Public Use
  Company Number: None

PATIENT
  Age: 85 Year
  Sex: Female
  Weight: 66.2252 kg

DRUGS (2)
  1. COUMADIN [Suspect]
     Indication: AORTIC VALVE DISEASE
     Dosage: ONE PO QD
     Route: 048
  2. COUMADIN [Suspect]
     Indication: MITRAL VALVE DISEASE
     Dosage: ONE PO QD
     Route: 048

REACTIONS (1)
  - PHARMACEUTICAL PRODUCT COMPLAINT [None]
